FAERS Safety Report 5449040-4 (Version None)
Quarter: 2007Q3

REPORT INFORMATION
  Report Type: 
  Country: None (occurrence: None)
  Receive Date: 20070911
  Receipt Date: 20070906
  Transmission Date: 20080115
  Serious: Yes (Hospitalization)
  Sender: FDA-Public Use
  Company Number: US-BRISTOL-MYERS SQUIBB COMPANY-13899752

PATIENT
  Age: 14 Year
  Sex: Female
  Weight: 45 kg

DRUGS (1)
  1. DASATINIB [Suspect]
     Indication: NEOPLASM
     Route: 048
     Dates: start: 20070720, end: 20070725

REACTIONS (8)
  - APNOEA [None]
  - CHEST PAIN [None]
  - HYPOALBUMINAEMIA [None]
  - HYPOTENSION [None]
  - HYPOXIA [None]
  - LYMPHOPENIA [None]
  - PLEURAL EFFUSION [None]
  - PYREXIA [None]
